FAERS Safety Report 5781211-X (Version None)
Quarter: 2008Q2

REPORT INFORMATION
  Report Type: 
  Country: None (occurrence: None)
  Receive Date: 20080609
  Receipt Date: 20080602
  Transmission Date: 20081010
  Serious: Yes (Hospitalization)
  Sender: FDA-Public Use
  Company Number: 200813685

PATIENT
  Sex: Female

DRUGS (1)
  1. VIVAGLOBIN [Suspect]

REACTIONS (1)
  - ARRHYTHMIA [None]
